FAERS Safety Report 4419721-X (Version None)
Quarter: 2004Q3

REPORT INFORMATION
  Report Type: 
  Country: None (occurrence: None)
  Receive Date: 20040804
  Receipt Date: 20040713
  Transmission Date: 20050211
  Serious: Yes (Other)
  Sender: FDA-Public Use
  Company Number: GBS040715235

PATIENT
  Age: 57 Year
  Sex: Female

DRUGS (1)
  1. CEPHALEXIN [Suspect]
     Indication: POLYURIA
     Dosage: 250 MG/4 DAY
     Dates: start: 20040614, end: 20040618

REACTIONS (6)
  - COUGH [None]
  - MIGRAINE [None]
  - NAUSEA [None]
  - PYREXIA [None]
  - RASH [None]
  - VOMITING [None]
